FAERS Safety Report 6567481-9 (Version None)
Quarter: 2010Q1

REPORT INFORMATION
  Report Type: 
  Country: None (occurrence: None)
  Receive Date: 20100202
  Receipt Date: 20100122
  Transmission Date: 20100710
  Serious: Yes (Hospitalization)
  Sender: FDA-Public Use
  Company Number: US-ELI_LILLY_AND_COMPANY-US200911006269

PATIENT
  Sex: Female
  Weight: 94.331 kg

DRUGS (10)
  1. BYETTA [Suspect]
     Indication: TYPE 2 DIABETES MELLITUS
     Dosage: 5 UG, 2/D
     Route: 058
     Dates: start: 20061101, end: 20061201
  2. BYETTA [Suspect]
     Dosage: 10 UG, 2/D
     Route: 058
     Dates: start: 20061201, end: 20070101
  3. BYETTA [Suspect]
     Dosage: 5 UG, 2/D
     Route: 058
     Dates: start: 20071101, end: 20081215
  4. BYETTA [Suspect]
     Dosage: 10 UG, 2/D
     Dates: start: 20081215
  5. ACCUPRIL [Concomitant]
     Dosage: 40 MG, DAILY (1/D)
  6. NORVASC [Concomitant]
     Dosage: 10 MG, DAILY (1/D)
  7. LABETALOL HCL [Concomitant]
     Dosage: 200 MG, 2/D
  8. LESCOL XL [Concomitant]
     Dosage: 80 MG, DAILY (1/D)
  9. GLYBURIDE [Concomitant]
     Dosage: 10 MG, EACH MORNING
  10. METFORMIN HCL [Concomitant]
     Dosage: 1000 MG, 2/D

REACTIONS (3)
  - BLOOD GLUCOSE INCREASED [None]
  - DRUG DOSE OMISSION [None]
  - RENAL CELL CARCINOMA [None]
